FAERS Safety Report 25351845 (Version 1)
Quarter: 2025Q2

REPORT INFORMATION
  Report Type: Spontaneous
  Country: SA (occurrence: SA)
  Receive Date: 20250523
  Receipt Date: 20250523
  Transmission Date: 20250717
  Serious: No
  Sender: ANI
  Company Number: SA-ANIPHARMA-022872

PATIENT
  Sex: Female

DRUGS (1)
  1. FLUVOXAMINE MALEATE [Suspect]
     Active Substance: FLUVOXAMINE MALEATE
     Indication: Product used for unknown indication

REACTIONS (1)
  - Rash [Unknown]
